FAERS Safety Report 5241776-3 (Version None)
Quarter: 2007Q1

REPORT INFORMATION
  Report Type: 
  Country: None (occurrence: None)
  Receive Date: 20070220
  Receipt Date: 20070209
  Transmission Date: 20070707
  Serious: Yes (Hospitalization)
  Sender: FDA-Public Use
  Company Number: GB-ROCHE-482918

PATIENT
  Age: 15 Year
  Sex: Male
  Weight: 57.9 kg

DRUGS (1)
  1. ISOTRETINOIN [Suspect]
     Indication: ACNE
     Route: 048
     Dates: start: 20061001, end: 20070117

REACTIONS (1)
  - CONFUSIONAL STATE [None]
